FAERS Safety Report 9595779 (Version 2)
Quarter: 2013Q4

REPORT INFORMATION
  Report Type: Spontaneous
  Country: US (occurrence: US)
  Receive Date: 20131004
  Receipt Date: 20131004
  Transmission Date: 20140711
  Serious: No
  Sender: FDA-Public Use
  Company Number: US-PURDUE-USA-2012-0092335

PATIENT
  Sex: Female

DRUGS (2)
  1. BUTRANS [Suspect]
     Indication: PAIN
     Dosage: 10 MCG/HR,
     Route: 062
     Dates: start: 20120828, end: 20120830
  2. HYDROCODONE [Concomitant]
     Indication: PAIN
     Dosage: 30 MG, DAILY

REACTIONS (2)
  - Dizziness [Unknown]
  - Nausea [Unknown]
